FAERS Safety Report 21956985 (Version 1)
Quarter: 2023Q1

REPORT INFORMATION
  Report Type: Spontaneous
  Country: NL (occurrence: NL)
  Receive Date: 20230206
  Receipt Date: 20230206
  Transmission Date: 20230418
  Serious: Yes (Other)
  Sender: FDA-Public Use
  Company Number: NL-ADIENNEP-2022AD001006

PATIENT
  Age: 8 Week
  Sex: Female

DRUGS (12)
  1. SPORANOX [Suspect]
     Active Substance: ITRACONAZOLE
     Indication: Antifungal prophylaxis
     Route: 065
  2. MYCOPHENOLATE MOFETIL [Suspect]
     Active Substance: MYCOPHENOLATE MOFETIL
     Indication: Prophylaxis against graft versus host disease
     Route: 065
  3. THIOTEPA [Suspect]
     Active Substance: THIOTEPA
     Indication: Allogenic stem cell transplantation
     Route: 065
  4. PREDNISONE [Suspect]
     Active Substance: PREDNISONE
     Indication: Prophylaxis against graft versus host disease
     Route: 065
  5. TREOSULFAN [Suspect]
     Active Substance: TREOSULFAN
     Indication: Allogenic stem cell transplantation
     Dosage: 10 G/M2 OVER DAYS -5 TO -3
     Route: 065
  6. AMPHOTERICIN B [Suspect]
     Active Substance: AMPHOTERICIN B
     Indication: Antibiotic prophylaxis
     Route: 065
  7. CYCLOSPORINE [Suspect]
     Active Substance: CYCLOSPORINE
     Indication: Prophylaxis against graft versus host disease
     Dosage: FROM DAY -1
     Route: 065
  8. ALEMTUZUMAB [Suspect]
     Active Substance: ALEMTUZUMAB
     Indication: Allogenic stem cell transplantation
     Dosage: 0.1 MG/KG OVER DAYS -12 TO -10
     Route: 065
  9. FLUDARABINE [Suspect]
     Active Substance: FLUDARABINE PHOSPHATE
     Indication: Allogenic stem cell transplantation
     Dosage: 30 MG/M2 OVER DAYS -6 TO -2
     Route: 065
  10. CIPROFLOXACIN [Suspect]
     Active Substance: CIPROFLOXACIN
     Indication: Antibiotic prophylaxis
     Route: 065
  11. METHOTREXATE [Suspect]
     Active Substance: METHOTREXATE
     Indication: Prophylaxis against graft versus host disease
     Dosage: 10 MG/M2 ON DAYS + 1 AND + 3
     Route: 065
  12. SIROLIMUS [Suspect]
     Active Substance: SIROLIMUS
     Indication: Prophylaxis against graft versus host disease
     Route: 065

REACTIONS (4)
  - Posterior reversible encephalopathy syndrome [Recovered/Resolved]
  - Streptococcal bacteraemia [Unknown]
  - Neutropenia [Recovered/Resolved]
  - Mucosal inflammation [Unknown]
